FAERS Safety Report 10542374 (Version 2)
Quarter: 2014Q4

REPORT INFORMATION
  Report Type: Report from Study
  Country: US (occurrence: US)
  Receive Date: 20141025
  Receipt Date: 20141114
  Transmission Date: 20150529
  Serious: Yes (Hospitalization, Other)
  Sender: FDA-Public Use
  Company Number: US-ABBVIE-14K-163-1297750-00

PATIENT
  Age: 58 Year
  Sex: Female
  Weight: 59.02 kg

DRUGS (1)
  1. HUMIRA [Suspect]
     Active Substance: ADALIMUMAB
     Indication: CROHN^S DISEASE
     Route: 065
     Dates: start: 201403, end: 20140925

REACTIONS (5)
  - Paranasal sinus hypersecretion [Not Recovered/Not Resolved]
  - Pneumonia [Not Recovered/Not Resolved]
  - Crohn^s disease [Unknown]
  - Anal fistula [Recovered/Resolved]
  - Bronchitis [Not Recovered/Not Resolved]

NARRATIVE: CASE EVENT DATE: 201403
